FAERS Safety Report 4270230-0 (Version None)
Quarter: 2004Q1

REPORT INFORMATION
  Report Type: 
  Country: None (occurrence: None)
  Receive Date: 20040113
  Receipt Date: 20040113
  Transmission Date: 20041129
  Serious: Yes (Hospitalization)
  Sender: FDA-Public Use
  Company Number: None

PATIENT
  Age: 76 Year
  Sex: Male

DRUGS (9)
  1. WARFARIN SODIUM [Suspect]
     Indication: ATRIAL FIBRILLATION
     Dosage: 4 MG QD
     Dates: start: 20000101
  2. LEVOFLOXACIN [Concomitant]
  3. METRONIDAZOLE [Concomitant]
  4. ZITHROMAX [Concomitant]
  5. METOPROLOL [Concomitant]
  6. LOMOTIL [Concomitant]
  7. KCL TAB [Concomitant]
  8. FUROSEMIDE [Concomitant]
  9. NITROGLYCERIN [Concomitant]

REACTIONS (2)
  - ANAEMIA [None]
  - HAEMATOMA [None]
